FAERS Safety Report 9606938 (Version 1)
Quarter: 2013Q4

REPORT INFORMATION
  Report Type: Spontaneous
  Country: US (occurrence: US)
  Receive Date: 20131008
  Receipt Date: 20131008
  Transmission Date: 20140711
  Serious: Yes (Other)
  Sender: FDA-Public Use
  Company Number: US-AMGEN-USASP2013068644

PATIENT
  Sex: Female

DRUGS (15)
  1. PROLIA [Suspect]
     Indication: OSTEOPOROSIS POSTMENOPAUSAL
     Route: 065
  2. DILAUDID [Concomitant]
  3. METHADONE [Concomitant]
  4. DIAZEPAM [Concomitant]
  5. LEVOTHYROXINE [Concomitant]
  6. ESTRADIOL [Concomitant]
  7. CLONAZEPAM [Concomitant]
  8. TRAZODONE [Concomitant]
  9. TEMAZEPAM [Concomitant]
  10. LOSARTAN [Concomitant]
  11. FUROSEMIDE [Concomitant]
  12. POTASSIUM [Concomitant]
  13. VITAMIN D3 [Concomitant]
  14. CALCIUM [Concomitant]
  15. JUICE PLUS [Concomitant]

REACTIONS (16)
  - Cellulitis [Unknown]
  - Pain [Unknown]
  - Gait disturbance [Unknown]
  - Back pain [Unknown]
  - Cystitis [Unknown]
  - Skin discolouration [Unknown]
  - Pain of skin [Unknown]
  - Skin lesion [Unknown]
  - Dysuria [Unknown]
  - Fall [Unknown]
  - Urinary tract infection [Unknown]
  - Pruritus [Unknown]
  - Rash macular [Unknown]
  - Ligament sprain [Unknown]
  - Pain in extremity [Unknown]
  - Erythema [Unknown]
